FAERS Safety Report 19029944 (Version 1)
Quarter: 2021Q1

REPORT INFORMATION
  Report Type: Spontaneous
  Country: IL (occurrence: IL)
  Receive Date: 20210319
  Receipt Date: 20210319
  Transmission Date: 20210420
  Serious: Yes (Hospitalization)
  Sender: FDA-Public Use
  Company Number: IL-AMGEN-ISRSP2021004302

PATIENT
  Age: 88 Year
  Sex: Male

DRUGS (3)
  1. OTEZLA [Suspect]
     Active Substance: APREMILAST
     Dosage: 10MG/DAY, THEN INCREASED TO 20MG/DAY AND THEN TO 30MG/DAY
     Route: 065
  2. OTEZLA [Suspect]
     Active Substance: APREMILAST
     Dosage: 30 MILLIGRAM, QD
     Route: 065
  3. OTEZLA [Suspect]
     Active Substance: APREMILAST
     Indication: PSORIASIS
     Dosage: 30 MILLIGRAM, BID (IN THE MORNING AND IN THE EVENING)
     Route: 065
     Dates: start: 202101

REACTIONS (6)
  - Vomiting [Recovered/Resolved]
  - Aggression [Not Recovered/Not Resolved]
  - Psoriasis [Unknown]
  - Pruritus [Recovered/Resolved]
  - Hospitalisation [Unknown]
  - Skin haemorrhage [Recovered/Resolved]

NARRATIVE: CASE EVENT DATE: 2021
